FAERS Safety Report 20084910 (Version 1)
Quarter: 2021Q4

REPORT INFORMATION
  Report Type: Spontaneous
  Country: US (occurrence: US)
  Receive Date: 20211118
  Receipt Date: 20211118
  Transmission Date: 20220303
  Serious: No
  Sender: FDA-Public Use
  Company Number: ENDG21-06622

PATIENT
  Age: 78 Year
  Sex: Female

DRUGS (6)
  1. MIDODRINE HYDROCHLORIDE [Suspect]
     Active Substance: MIDODRINE HYDROCHLORIDE
     Indication: Hypotension
     Dosage: 5 MG, UNKNOWN
     Route: 048
     Dates: start: 202107, end: 202110
  2. MIDODRINE HYDROCHLORIDE [Suspect]
     Active Substance: MIDODRINE HYDROCHLORIDE
     Indication: Hypotension
     Dosage: 10 MG BID (10 MG IN THE MORNING AND 10 MG AT NIGHT)
     Route: 048
     Dates: start: 202110
  3. METOPROLOL [Concomitant]
     Active Substance: METOPROLOL
     Indication: Product used for unknown indication
  4. TRAZODONE [Concomitant]
     Active Substance: TRAZODONE HYDROCHLORIDE
     Indication: Product used for unknown indication
  5. ATORVASTATIN [Concomitant]
     Active Substance: ATORVASTATIN
     Indication: Product used for unknown indication
  6. BUPROPION XL                          /00700502/ [Concomitant]
     Indication: Product used for unknown indication

REACTIONS (4)
  - Fall [Unknown]
  - Chills [Not Recovered/Not Resolved]
  - Asthenia [Unknown]
  - Pruritus [Unknown]

NARRATIVE: CASE EVENT DATE: 20210701
